FAERS Safety Report 17134901 (Version 2)
Quarter: 2019Q4

REPORT INFORMATION
  Report Type: Spontaneous
  Country: SE (occurrence: SE)
  Receive Date: 20191210
  Receipt Date: 20191213
  Transmission Date: 20200122
  Serious: Yes (Hospitalization)
  Sender: FDA-Public Use
  Company Number: SE-PFIZER INC-2019528100

PATIENT
  Age: 39 Year
  Sex: Female

DRUGS (2)
  1. LERGIGAN [PROMETHAZINE HYDROCHLORIDE] [Suspect]
     Active Substance: PROMETHAZINE HYDROCHLORIDE
     Dosage: UNK (500 MG 14-17 OCLOCK)
     Route: 048
     Dates: start: 201907, end: 201907
  2. LYRICA [Suspect]
     Active Substance: PREGABALIN
     Dosage: UNK (750 MG 14-17 OCLOCK)
     Route: 048
     Dates: start: 201907, end: 201907

REACTIONS (4)
  - Intentional self-injury [Unknown]
  - Intentional overdose [Unknown]
  - Electrocardiogram QRS complex shortened [Unknown]
  - Blood carbon monoxide increased [Unknown]

NARRATIVE: CASE EVENT DATE: 201907
